FAERS Safety Report 4704260-9 (Version None)
Quarter: 2005Q2

REPORT INFORMATION
  Report Type: 
  Country: None (occurrence: None)
  Receive Date: 20050630
  Receipt Date: 20050622
  Transmission Date: 20051028
  Serious: Yes (Other)
  Sender: FDA-Public Use
  Company Number: PHBS2005KR09000

PATIENT
  Age: 42 Year
  Sex: Male

DRUGS (2)
  1. IMATINIB [Suspect]
     Indication: GASTROINTESTINAL STROMAL TUMOUR
     Dosage: 400 MG/D
     Route: 048
  2. IMATINIB [Suspect]
     Dosage: 400 MG/D
     Route: 048

REACTIONS (11)
  - BLOOD TESTOSTERONE DECREASED [None]
  - BREAST PAIN [None]
  - ERECTILE DYSFUNCTION [None]
  - EYE SWELLING [None]
  - GYNAECOMASTIA [None]
  - HYDROCELE [None]
  - HYDROCELE EXCISION [None]
  - LIBIDO DECREASED [None]
  - SCROTAL OEDEMA [None]
  - SCROTAL SWELLING [None]
  - TESTICULAR DISORDER [None]
